FAERS Safety Report 5144191-6 (Version None)
Quarter: 2006Q4

REPORT INFORMATION
  Report Type: 
  Country: None (occurrence: None)
  Receive Date: 20061106
  Receipt Date: 20060920
  Transmission Date: 20070319
  Serious: Yes (Other)
  Sender: FDA-Public Use
  Company Number: BR-ROCHE-464317

PATIENT
  Age: 14 Year
  Sex: Female

DRUGS (2)
  1. ROACUTAN [Suspect]
     Indication: ACNE
     Route: 048
     Dates: start: 20060615, end: 20060915
  2. ROACUTAN [Suspect]
     Route: 048
     Dates: start: 20060915

REACTIONS (1)
  - GLAUCOMA [None]
